FAERS Safety Report 8483577-9 (Version None)
Quarter: 2012Q3

REPORT INFORMATION
  Report Type: 
  Country: None (occurrence: None)
  Receive Date: 20120702
  Receipt Date: 20120627
  Transmission Date: 20120928
  Serious: Yes (Death, Hospitalization)
  Sender: FDA-Public Use
  Company Number: JP-MERCK-1205USA03381

PATIENT
  Age: 64 Year
  Sex: Male

DRUGS (5)
  1. LOSARTAN POTASSIUM AND HYDROCHLOROTHIAZIDE [Concomitant]
     Route: 065
  2. ACTOS [Suspect]
     Indication: TYPE 2 DIABETES MELLITUS
     Route: 065
  3. AMARYL [Concomitant]
     Route: 065
  4. JANUVIA [Suspect]
     Indication: TYPE 2 DIABETES MELLITUS
     Route: 048
     Dates: start: 20100917, end: 20120402
  5. MAGLAX (MAGNESIUM OXIDE) [Concomitant]
     Route: 065

REACTIONS (1)
  - GASTRIC CANCER [None]
